FAERS Safety Report 7598174-7 (Version None)
Quarter: 2011Q3

REPORT INFORMATION
  Report Type: 
  Country: None (occurrence: None)
  Receive Date: 20110708
  Receipt Date: 20110628
  Transmission Date: 20111222
  Serious: Yes (Other)
  Sender: FDA-Public Use
  Company Number: FR-SANOFI-AVENTIS-2011SA041112

PATIENT
  Age: 40 Year
  Sex: Female

DRUGS (2)
  1. INSULIN [Concomitant]
     Indication: BREAST CANCER FEMALE
     Route: 065
     Dates: start: 20030101
  2. LANTUS [Suspect]
     Indication: TYPE 1 DIABETES MELLITUS
     Route: 058
     Dates: start: 20030101

REACTIONS (1)
  - BREAST CANCER FEMALE [None]
